FAERS Safety Report 21527026 (Version 3)
Quarter: 2023Q1

REPORT INFORMATION
  Report Type: Spontaneous
  Country: PR (occurrence: PR)
  Receive Date: 20221031
  Receipt Date: 20230209
  Transmission Date: 20230417
  Serious: No
  Sender: FDA-Public Use
  Company Number: PR-JNJFOC-20221059349

PATIENT
  Sex: Male

DRUGS (1)
  1. ERLEADA [Suspect]
     Active Substance: APALUTAMIDE
     Indication: Prostate cancer
     Route: 048

REACTIONS (4)
  - Rash [Recovering/Resolving]
  - Peripheral swelling [Recovering/Resolving]
  - Dry skin [Not Recovered/Not Resolved]
  - Haemoglobin decreased [Recovering/Resolving]
